FAERS Safety Report 9127342 (Version 1)
Quarter: 2013Q1

REPORT INFORMATION
  Report Type: Spontaneous
  Country: US (occurrence: US)
  Receive Date: 20130228
  Receipt Date: 20130228
  Transmission Date: 20140127
  Serious: No
  Sender: FDA-Public Use
  Company Number: US-GLAXOSMITHKLINE-A0970192A

PATIENT
  Age: 23 Year
  Sex: Male

DRUGS (3)
  1. LAMOTRIGINE [Suspect]
     Indication: PARTIAL SEIZURES
     Dosage: 150MG TWICE PER DAY
     Route: 048
     Dates: start: 2007
  2. TOPIRAMATE [Concomitant]
  3. VITAMIN D3 [Concomitant]

REACTIONS (5)
  - Rash [Unknown]
  - Anger [Unknown]
  - Skin discolouration [Unknown]
  - Insomnia [Unknown]
  - Asthenia [Unknown]
